FAERS Safety Report 5689842-2 (Version None)
Quarter: 2008Q1

REPORT INFORMATION
  Report Type: 
  Country: None (occurrence: None)
  Receive Date: 20080331
  Receipt Date: 20080331
  Transmission Date: 20080703
  Serious: No
  Sender: FDA-Public Use
  Company Number: None

PATIENT
  Age: 53 Year
  Sex: Female
  Weight: 64.4108 kg

DRUGS (2)
  1. CADUET [Suspect]
     Indication: BLOOD CHOLESTEROL INCREASED
     Dosage: 1 TABLET AT BEDTIME PO
     Route: 048
     Dates: start: 20071223, end: 20080220
  2. CADUET [Suspect]
     Indication: HYPERTENSION
     Dosage: 1 TABLET AT BEDTIME PO
     Route: 048
     Dates: start: 20071223, end: 20080220

REACTIONS (3)
  - ACTIVITIES OF DAILY LIVING IMPAIRED [None]
  - MYALGIA [None]
  - QUALITY OF LIFE DECREASED [None]
